FAERS Safety Report 5301543-9 (Version None)
Quarter: 2007Q2

REPORT INFORMATION
  Report Type: 
  Country: None (occurrence: None)
  Receive Date: 20070412
  Receipt Date: 20070328
  Transmission Date: 20071010
  Serious: Yes (Hospitalization)
  Sender: FDA-Public Use
  Company Number: 154512USA

PATIENT
  Age: 65 Year
  Sex: Female

DRUGS (3)
  1. PROPOFOL [Suspect]
  2. FENTANYL [Suspect]
  3. ETHANOL [Suspect]

REACTIONS (5)
  - BLOOD PRESSURE DECREASED [None]
  - OXYGEN SATURATION DECREASED [None]
  - PNEUMONIA ASPIRATION [None]
  - VOMITING [None]
  - WHEEZING [None]
